FAERS Safety Report 9868663 (Version 2)
Quarter: 2014Q1

REPORT INFORMATION
  Report Type: Report from Study
  Country: US (occurrence: US)
  Receive Date: 20140204
  Receipt Date: 20140204
  Transmission Date: 20141002
  Serious: Yes (Hospitalization)
  Sender: FDA-Public Use
  Company Number: US-ABBVIE-13P-163-1119138-00

PATIENT
  Age: 20 Year
  Sex: Male

DRUGS (5)
  1. HUMIRA [Suspect]
     Indication: CROHN^S DISEASE
     Dates: start: 20121224
  2. HUMIRA [Suspect]
     Dates: start: 20140122
  3. CIMZIA [Suspect]
     Dates: start: 20131222
  4. XANAX [Concomitant]
     Indication: ANXIETY
     Dosage: 0.5 MG EVERY 6 HOURS AS NEEDED
  5. BACLOFEN [Concomitant]
     Indication: HYPOTONIA

REACTIONS (14)
  - Small intestinal obstruction [Not Recovered/Not Resolved]
  - Crohn^s disease [Not Recovered/Not Resolved]
  - Weight decreased [Not Recovered/Not Resolved]
  - Injection site pain [Not Recovered/Not Resolved]
  - Headache [Not Recovered/Not Resolved]
  - Injection site reaction [Not Recovered/Not Resolved]
  - Burning sensation [Not Recovered/Not Resolved]
  - Crohn^s disease [Not Recovered/Not Resolved]
  - Injection site pain [Not Recovered/Not Resolved]
  - Staphylococcal infection [Recovered/Resolved]
  - Injection site vesicles [Not Recovered/Not Resolved]
  - Eye movement disorder [Not Recovered/Not Resolved]
  - Cold sweat [Not Recovered/Not Resolved]
  - Presyncope [Not Recovered/Not Resolved]
